FAERS Safety Report 6269877-1 (Version None)
Quarter: 2009Q3

REPORT INFORMATION
  Report Type: 
  Country: None (occurrence: None)
  Receive Date: 20090716
  Receipt Date: 20090707
  Transmission Date: 20100115
  Serious: Yes (Other)
  Sender: FDA-Public Use
  Company Number: PHHY2009NZ09263

PATIENT
  Sex: Female

DRUGS (11)
  1. EXELON [Suspect]
     Indication: DEMENTIA ALZHEIMER'S TYPE
     Dosage: 9.5 MG DAILY
     Route: 062
     Dates: start: 20090123, end: 20090310
  2. EXELON [Suspect]
     Dosage: PATCH 10
     Route: 062
  3. EXELON [Suspect]
     Dosage: PATCH 5
     Route: 062
  4. VENLAFAXINE HYDROCHLORIDE [Concomitant]
     Dosage: 75 MG DAILY
     Dates: start: 20081003
  5. CARDIZEM [Concomitant]
     Dosage: 120 MG NOCTE
  6. WARFARIN SODIUM [Concomitant]
     Dosage: 4 MG
  7. ENALAPRIL MALEATE [Concomitant]
     Dosage: 2.5 MG, BID
  8. FUROSEMIDE [Concomitant]
     Dosage: 20 MG
  9. CALCIFEROL [Concomitant]
     Dosage: 1 TABLET
  10. DIGOXIN [Concomitant]
  11. ARICEPT [Concomitant]

REACTIONS (5)
  - APPLICATION SITE ERYTHEMA [None]
  - APPLICATION SITE PRURITUS [None]
  - APPLICATION SITE RASH [None]
  - CARDIAC DISORDER [None]
  - DERMATITIS CONTACT [None]
